FAERS Safety Report 21085030 (Version 1)
Quarter: 2022Q3

REPORT INFORMATION
  Report Type: Spontaneous
  Country: US (occurrence: US)
  Receive Date: 20220714
  Receipt Date: 20220714
  Transmission Date: 20221026
  Serious: No
  Sender: FDA-Public Use
  Company Number: US-SA-SAC20220713000229

PATIENT
  Sex: Male

DRUGS (1)
  1. DUPIXENT [Suspect]
     Active Substance: DUPILUMAB
     Indication: Dermatitis atopic
     Dosage: INJECT 300MG (1 PEN) SUBCUTANEOUSLY EVERY TWO WEEKS
     Route: 058

REACTIONS (2)
  - Fall [Unknown]
  - Spinal column injury [Unknown]
